FAERS Safety Report 7906758-9 (Version None)
Quarter: 2011Q4

REPORT INFORMATION
  Report Type: 
  Country: None (occurrence: None)
  Receive Date: 20111109
  Receipt Date: 20111109
  Transmission Date: 20120403
  Serious: No
  Sender: FDA-Public Use
  Company Number: None

PATIENT
  Age: 44 Year
  Sex: Female
  Weight: 68.0396 kg

DRUGS (1)
  1. DICLOFENAC SODIUM [Suspect]
     Indication: BONE PAIN
     Dosage: 50MG TID PO
     Route: 048
     Dates: start: 20110927, end: 20111003

REACTIONS (12)
  - JOINT SWELLING [None]
  - MIGRAINE [None]
  - NECK PAIN [None]
  - LACERATION [None]
  - PAIN IN EXTREMITY [None]
  - MUSCULOSKELETAL PAIN [None]
  - FEELING ABNORMAL [None]
  - HYPOAESTHESIA [None]
  - GRIP STRENGTH DECREASED [None]
  - ARTHRALGIA [None]
  - BLOOD PRESSURE INCREASED [None]
  - HEART RATE INCREASED [None]
